FAERS Safety Report 7477390-9 (Version None)
Quarter: 2011Q2

REPORT INFORMATION
  Report Type: 
  Country: None (occurrence: None)
  Receive Date: 20110513
  Receipt Date: 20110504
  Transmission Date: 20111010
  Serious: No
  Sender: FDA-Public Use
  Company Number: US-BIOGENIDEC-2011BI016998

PATIENT
  Sex: Female

DRUGS (5)
  1. TRILEPTAL [Concomitant]
     Indication: CONVULSION
  2. MUSCLE RELAXER (NOS) [Concomitant]
     Indication: MUSCLE SPASMS
  3. TYSABRI [Suspect]
     Indication: MULTIPLE SCLEROSIS
     Route: 042
     Dates: start: 20101118
  4. FLEXERIL [Concomitant]
     Indication: MULTIPLE SCLEROSIS
  5. LAMICTAL [Concomitant]
     Indication: CONVULSION

REACTIONS (1)
  - FEELING ABNORMAL [None]
